FAERS Safety Report 23870416 (Version 1)
Quarter: 2024Q2

REPORT INFORMATION
  Report Type: Report from Study
  Country: US (occurrence: US)
  Receive Date: 20240518
  Receipt Date: 20240518
  Transmission Date: 20240716
  Serious: No
  Sender: FDA-Public Use
  Company Number: US-Accord-387483

PATIENT
  Age: 75 Year
  Sex: Male

DRUGS (4)
  1. TADALAFIL [Suspect]
     Active Substance: TADALAFIL
     Indication: Product used for unknown indication
  2. RELUGOLIX [Suspect]
     Active Substance: RELUGOLIX
     Indication: Prostate cancer
     Dosage: STRENGTH:120 MILLIGRAM, QD
     Route: 048
     Dates: start: 20230803
  3. ENZALUTAMIDE [Concomitant]
     Active Substance: ENZALUTAMIDE
  4. RELUGOLIX [Suspect]
     Active Substance: RELUGOLIX
     Indication: Prostate cancer
     Dosage: STRENGTH:120 MILLIGRAM
     Route: 065

REACTIONS (4)
  - Bone pain [Unknown]
  - Dysuria [Unknown]
  - Arthralgia [Recovering/Resolving]
  - Asthenia [Recovered/Resolved]
